FAERS Safety Report 7051360-7 (Version None)
Quarter: 2010Q4

REPORT INFORMATION
  Report Type: 
  Country: None (occurrence: None)
  Receive Date: 20101018
  Receipt Date: 20101018
  Transmission Date: 20110411
  Serious: Yes (Other)
  Sender: FDA-Public Use
  Company Number: None

PATIENT
  Age: 87 Year
  Sex: Female

DRUGS (2)
  1. ZOLPIDEM [Suspect]
     Indication: INSOMNIA
     Dosage: 1 DOSE AT BEDTIME ONLY ONCE
     Dates: start: 20100930
  2. ZOLPIDEM [Suspect]
     Indication: POST-TRAUMATIC PAIN
     Dosage: 1 DOSE AT BEDTIME ONLY ONCE
     Dates: start: 20100930

REACTIONS (1)
  - DEPRESSION [None]
